FAERS Safety Report 8196553-0 (Version None)
Quarter: 2012Q1

REPORT INFORMATION
  Report Type: 
  Country: None (occurrence: None)
  Receive Date: 20120309
  Receipt Date: 20120301
  Transmission Date: 20120608
  Serious: Yes (Other)
  Sender: FDA-Public Use
  Company Number: PT-US-EMD SERONO, INC.-7116945

PATIENT
  Sex: Female
  Weight: 55 kg

DRUGS (2)
  1. REBIF [Suspect]
     Indication: MULTIPLE SCLEROSIS
     Dates: start: 20070801, end: 20111121
  2. REBIF [Suspect]
     Dates: start: 20070101, end: 20111201

REACTIONS (1)
  - ABSCESS LIMB [None]
